FAERS Safety Report 5716724-X (Version None)
Quarter: 2008Q2

REPORT INFORMATION
  Report Type: 
  Country: None (occurrence: None)
  Receive Date: 20080424
  Receipt Date: 20070518
  Transmission Date: 20081010
  Serious: No
  Sender: FDA-Public Use
  Company Number: US-BAYER-200711482BWH

PATIENT
  Sex: Male

DRUGS (10)
  1. LEVITRA [Suspect]
     Indication: DRUG USE FOR UNKNOWN INDICATION
     Dosage: AS USED: 10 MG  UNIT DOSE: 10 MG
     Route: 048
     Dates: start: 20070301, end: 20070401
  2. LEVITRA [Suspect]
     Dosage: AS USED: 20 MG  UNIT DOSE: 20 MG
     Route: 048
     Dates: start: 20070401
  3. COREG [Concomitant]
  4. ACCUPRIL [Concomitant]
  5. VYTORIN [Concomitant]
  6. NIASPAN [Concomitant]
  7. FUROSEMIDE [Concomitant]
  8. NASACORT [Concomitant]
  9. ALLEGRA [Concomitant]
  10. SINGULAIR [Concomitant]

REACTIONS (1)
  - DRUG USE FOR UNKNOWN INDICATION [None]
